FAERS Safety Report 8120215-9 (Version None)
Quarter: 2012Q1

REPORT INFORMATION
  Report Type: 
  Country: None (occurrence: None)
  Receive Date: 20120207
  Receipt Date: 20120127
  Transmission Date: 20120608
  Serious: Yes (Hospitalization)
  Sender: FDA-Public Use
  Company Number: US-PERRIGO-12US000765

PATIENT
  Sex: Female
  Weight: 113.38 kg

DRUGS (1)
  1. IBUPROFEN [Suspect]
     Indication: PAIN
     Dosage: 400 MG, SINGLE
     Route: 048
     Dates: start: 20120114, end: 20120114

REACTIONS (2)
  - RECTAL HAEMORRHAGE [None]
  - ASTHENIA [None]
